FAERS Safety Report 6478473-2 (Version None)
Quarter: 2009Q4

REPORT INFORMATION
  Report Type: 
  Country: None (occurrence: None)
  Receive Date: 20091202
  Receipt Date: 20091119
  Transmission Date: 20100525
  Serious: No
  Sender: FDA-Public Use
  Company Number: 441994

PATIENT
  Age: 42 Year
  Sex: Male

DRUGS (6)
  1. CYTARABINE [Suspect]
     Dosage: 3600 MG, 7 DAY, INTRAVENOUS
     Route: 042
     Dates: start: 20090812, end: 20090813
  2. (MABTHERA) [Concomitant]
  3. CISPLATIN [Concomitant]
  4. SPORANOX [Concomitant]
  5. (LEVOXACIN) [Concomitant]
  6. (ZELITREX /01269702/) [Concomitant]

REACTIONS (2)
  - DIARRHOEA [None]
  - FEBRILE NEUTROPENIA [None]
